FAERS Safety Report 21946200 (Version 2)
Quarter: 2023Q1

REPORT INFORMATION
  Report Type: Spontaneous
  Country: FR (occurrence: FR)
  Receive Date: 20230202
  Receipt Date: 20230214
  Transmission Date: 20230417
  Serious: Yes (Other)
  Sender: FDA-Public Use
  Company Number: FR-GUERBETG-FR-20230042

PATIENT
  Age: 51 Year
  Sex: Female
  Weight: 80 kg

DRUGS (3)
  1. DOTAREM [Suspect]
     Active Substance: GADOTERATE MEGLUMINE
     Indication: Magnetic resonance imaging spinal
     Route: 042
     Dates: start: 20230123, end: 20230123
  2. TRAMADOL [Concomitant]
     Active Substance: TRAMADOL
     Indication: Product used for unknown indication
     Route: 065
  3. DULOXETINE [Concomitant]
     Active Substance: DULOXETINE
     Indication: Product used for unknown indication
     Route: 065

REACTIONS (3)
  - Respiratory distress [Recovering/Resolving]
  - Urticaria [Recovering/Resolving]
  - Vocal cord inflammation [Recovering/Resolving]

NARRATIVE: CASE EVENT DATE: 20230123
